FAERS Safety Report 9583351 (Version 1)
Quarter: 2013Q4

REPORT INFORMATION
  Report Type: Spontaneous
  Country: US (occurrence: US)
  Receive Date: 20131002
  Receipt Date: 20131002
  Transmission Date: 20140711
  Serious: No
  Sender: FDA-Public Use
  Company Number: US-AMGEN-USASP2013046552

PATIENT
  Age: 62 Year
  Sex: Female
  Weight: 98.87 kg

DRUGS (7)
  1. ENBREL [Suspect]
     Indication: PRODUCT USED FOR UNKNOWN INDICATION
     Dosage: 50 MG, QWK
     Route: 058
  2. ASPIRINE 325 MG [Concomitant]
     Dosage: UNK
  3. MULTIVITAMINS, PLAIN [Concomitant]
     Dosage: UNK
  4. KETOPROFEN [Concomitant]
     Dosage: 75 MG, UNK
  5. GABAPENTIN [Concomitant]
     Dosage: 300 MG, UNK
  6. LISINOPRIL [Concomitant]
     Dosage: 20 MG, UNK
  7. LEVOTHYROXIN [Concomitant]
     Dosage: 100 MUG, UNK

REACTIONS (1)
  - Haemorrhoids [Unknown]
